FAERS Safety Report 9970547 (Version 1)
Quarter: 2014Q1

REPORT INFORMATION
  Report Type: Report from Study
  Country: US (occurrence: US)
  Receive Date: 20140306
  Receipt Date: 20140306
  Transmission Date: 20141002
  Serious: No
  Sender: FDA-Public Use
  Company Number: US-ABBVIE-13P-163-1150757-00

PATIENT
  Age: 55 Year
  Sex: Female

DRUGS (8)
  1. HUMIRA [Suspect]
     Indication: RHEUMATOID ARTHRITIS
     Dosage: 40MG INITIAL DOSE
     Dates: start: 20130908
  2. LISINOPRIL/HCTZ [Concomitant]
     Indication: BLOOD PRESSURE
     Dosage: 20/25MG DIALY
  3. NORVASC [Concomitant]
     Indication: BLOOD PRESSURE
     Dosage: 10MG DAILY
  4. COLACE [Concomitant]
     Indication: DIARRHOEA
     Dosage: 1 DAILY
  5. CENESTIN [Concomitant]
     Indication: HORMONE REPLACEMENT THERAPY
  6. ALLEGRA [Concomitant]
     Indication: URTICARIA
     Dosage: 180MG DAILY
  7. ZOCOR [Concomitant]
     Indication: BLOOD CHOLESTEROL
     Dosage: BEDTIME
  8. TRAMADOL [Concomitant]
     Indication: RHEUMATOID ARTHRITIS

REACTIONS (3)
  - Device malfunction [Recovered/Resolved]
  - Incorrect dose administered [Recovered/Resolved]
  - Injection site pain [Recovered/Resolved]
